FAERS Safety Report 8950473 (Version 1)
Quarter: 2012Q4

REPORT INFORMATION
  Report Type: 
  Country: IT (occurrence: IT)
  Receive Date: 20121207
  Receipt Date: 20121207
  Transmission Date: 20130627
  Serious: Yes (Hospitalization)
  Sender: FDA-Public Use
  Company Number: IT-JNJFOC-20121200165

PATIENT
  Age: 88 Year
  Sex: Female

DRUGS (1)
  1. PALEXIA [Suspect]
     Indication: ARTHRALGIA
     Route: 048
     Dates: start: 20121001, end: 20121113

REACTIONS (1)
  - Faecaloma [Recovered/Resolved]
